FAERS Safety Report 4419715-4 (Version None)
Quarter: 2004Q3

REPORT INFORMATION
  Report Type: 
  Country: None (occurrence: None)
  Receive Date: 20040804
  Receipt Date: 20040723
  Transmission Date: 20050211
  Serious: Yes (Hospitalization)
  Sender: FDA-Public Use
  Company Number: 208158

PATIENT
  Age: 44 Year
  Sex: Female

DRUGS (2)
  1. HERCEPTIN [Suspect]
     Indication: BREAST CANCER METASTATIC
     Dosage: INTRAVENOUS
     Route: 042
     Dates: start: 20031001, end: 20040101
  2. PLATINOL [Suspect]
     Indication: BREAST CANCER METASTATIC
     Dates: start: 20031001, end: 20040101

REACTIONS (2)
  - CHOLANGITIS SCLEROSING [None]
  - HEPATOCELLULAR DAMAGE [None]
